FAERS Safety Report 4274139-8 (Version None)
Quarter: 2004Q1

REPORT INFORMATION
  Report Type: 
  Country: None (occurrence: None)
  Receive Date: 20040120
  Receipt Date: 20031112
  Transmission Date: 20041129
  Serious: Yes (Hospitalization, Disabling, Other)
  Sender: FDA-Public Use
  Company Number: JP-BRISTOL-MYERS SQUIBB COMPANY-12438818

PATIENT
  Age: 50 Year
  Sex: Male

DRUGS (9)
  1. GATIFLO [Suspect]
     Indication: LARYNGOPHARYNGITIS
     Route: 048
     Dates: start: 20031006, end: 20031009
  2. GATIFLO [Suspect]
     Indication: ACUTE SINUSITIS
     Route: 048
     Dates: start: 20031006, end: 20031009
  3. NORVASC [Concomitant]
     Indication: HYPERTENSION
     Route: 048
     Dates: start: 19980717
  4. APLACE [Concomitant]
     Route: 048
     Dates: start: 20031006, end: 20031014
  5. NIPOLAZINE [Concomitant]
     Dosage: 06-OCT-03 TO 14-OCT-03 THEN 25-OCT-03 TO 04-NOV-2003
     Route: 048
     Dates: start: 20031006, end: 20031104
  6. SURGAM [Concomitant]
     Route: 048
     Dates: start: 20031006, end: 20031014
  7. KLARICID [Concomitant]
     Route: 048
     Dates: start: 20031025, end: 20031104
  8. ZYLORIC [Concomitant]
     Indication: HYPERURICAEMIA
     Dosage: DOSAGE FORM-TABLET
     Route: 048
     Dates: start: 20020629
  9. AMARYL [Concomitant]
     Route: 048
     Dates: start: 20020827, end: 20030730

REACTIONS (7)
  - FATIGUE [None]
  - GLYCOSYLATED HAEMOGLOBIN INCREASED [None]
  - HYPERGLYCAEMIA [None]
  - MALAISE [None]
  - MUSCLE CRAMP [None]
  - POLYURIA [None]
  - WEIGHT DECREASED [None]
